FAERS Safety Report 15712264 (Version 2)
Quarter: 2018Q4

REPORT INFORMATION
  Report Type: Spontaneous
  Country: US (occurrence: US)
  Receive Date: 20181212
  Receipt Date: 20181214
  Transmission Date: 20190205
  Serious: Yes (Other)
  Sender: FDA-Public Use
  Company Number: US-PFIZER INC-2018508021

PATIENT
  Age: 53 Year
  Sex: Female
  Weight: 124.7 kg

DRUGS (3)
  1. GABAPENTIN. [Suspect]
     Active Substance: GABAPENTIN
     Dosage: 200 MG, UNK
     Route: 048
  2. GABAPENTIN. [Suspect]
     Active Substance: GABAPENTIN
     Indication: RADICULOPATHY
     Dosage: 300 MG, 1X/DAY
     Route: 048
     Dates: start: 2016
  3. GABAPENTIN. [Suspect]
     Active Substance: GABAPENTIN
     Indication: SPINAL COLUMN STENOSIS
     Dosage: 300 MG, 3X/DAY
     Route: 048

REACTIONS (9)
  - Feeling abnormal [Unknown]
  - Fatigue [Unknown]
  - Crying [Unknown]
  - Drug ineffective [Unknown]
  - Weight increased [Unknown]
  - Suicidal ideation [Unknown]
  - Dizziness [Unknown]
  - Memory impairment [Unknown]
  - Depression [Unknown]
